FAERS Safety Report 6227379-2 (Version None)
Quarter: 2009Q2

REPORT INFORMATION
  Report Type: 
  Country: None (occurrence: None)
  Receive Date: 20090610
  Receipt Date: 20090527
  Transmission Date: 20091009
  Serious: Yes (Death, Hospitalization, Other)
  Sender: FDA-Public Use
  Company Number: 2009US001959

PATIENT
  Age: 43 Year
  Sex: Male

DRUGS (2)
  1. PROGRAF [Suspect]
     Indication: LIVER TRANSPLANT
     Dosage: 12 MG, BID
  2. PREDNISONE TAB [Suspect]
     Indication: LIVER TRANSPLANT
     Dosage: 7.5 MG, UID/QD

REACTIONS (8)
  - ACUTE RESPIRATORY DISTRESS SYNDROME [None]
  - CARDIO-RESPIRATORY ARREST [None]
  - CHRONIC HEPATITIS [None]
  - CYTOMEGALOVIRUS INFECTION [None]
  - HERPES DERMATITIS [None]
  - LIVER TRANSPLANT REJECTION [None]
  - STRONGYLOIDIASIS [None]
  - TINEA CRURIS [None]
